FAERS Safety Report 9552832 (Version 1)
Quarter: 2013Q2

REPORT INFORMATION
  Report Type: Spontaneous
  Country: US (occurrence: None)
  Receive Date: 20130606
  Receipt Date: 20130606
  Transmission Date: 20140414
  Serious: Yes (Other)
  Sender: FDA-Public Use
  Company Number: 2013PROUSA02783

PATIENT
  Age: 67 Year
  Sex: Male

DRUGS (1)
  1. PROVENGE [Suspect]
     Indication: PROSTATE CANCER METASTATIC
     Dosage: 250 ML, SINGLE, INTRAVENOUS
     Route: 042
     Dates: start: 20130404, end: 20130404

REACTIONS (5)
  - Poor venous access [None]
  - Injection site extravasation [None]
  - Infusion site haematoma [None]
  - Infusion site swelling [None]
  - Infusion site pain [None]
